FAERS Safety Report 23895534 (Version 1)
Quarter: 2024Q2

REPORT INFORMATION
  Report Type: Spontaneous
  Country: US (occurrence: None)
  Receive Date: 20240523
  Receipt Date: 20240523
  Transmission Date: 20240716
  Serious: Yes (Other)
  Sender: FDA-Public Use
  Company Number: None

PATIENT
  Age: 77 Year
  Sex: Male
  Weight: 132.75 kg

DRUGS (16)
  1. SKYRIZI [Suspect]
     Active Substance: RISANKIZUMAB-RZAA
     Indication: Psoriatic arthropathy
     Dates: start: 20240418, end: 20240516
  2. SKYRIZI [Suspect]
     Active Substance: RISANKIZUMAB-RZAA
     Indication: Psoriasis
  3. SYNTHROID [Concomitant]
  4. pantaprozole [Concomitant]
  5. XARELTO [Concomitant]
  6. METOPROLOL [Concomitant]
  7. METHOTREXATE [Concomitant]
     Active Substance: METHOTREXATE
  8. FOLIC ACID [Concomitant]
  9. TAMSULOSIN [Concomitant]
  10. LOSARTAN [Concomitant]
     Active Substance: LOSARTAN
  11. gabapenton [Concomitant]
  12. CELEBREX [Concomitant]
     Active Substance: CELECOXIB
  13. VITAMIN C [Concomitant]
     Active Substance: ASCORBIC ACID
  14. VITAMIN D [Concomitant]
     Active Substance: VITAMIN D NOS
  15. VITAMIN B12 [Concomitant]
     Active Substance: CYANOCOBALAMIN
  16. FOCUS SELECT [Concomitant]

REACTIONS (8)
  - Oropharyngeal pain [None]
  - Throat irritation [None]
  - Drug hypersensitivity [None]
  - Dry mouth [None]
  - Dysgeusia [None]
  - Epistaxis [None]
  - Oral herpes [None]
  - Tenderness [None]

NARRATIVE: CASE EVENT DATE: 20240519
